FAERS Safety Report 7016365-0 (Version None)
Quarter: 2010Q3

REPORT INFORMATION
  Report Type: 
  Country: None (occurrence: None)
  Receive Date: 20100927
  Receipt Date: 20100917
  Transmission Date: 20110219
  Serious: Yes (Hospitalization)
  Sender: FDA-Public Use
  Company Number: US-ABBOTT-10P-163-0666658-00

PATIENT
  Sex: Male
  Weight: 40.86 kg

DRUGS (5)
  1. HUMIRA [Suspect]
     Indication: CROHN'S DISEASE
     Route: 058
     Dates: start: 20090901, end: 20100901
  2. HUMIRA [Suspect]
     Dates: start: 20100901
  3. TPN ELECTROLYTES IN PLASTIC CONTAINER [Concomitant]
     Indication: PRODUCT USED FOR UNKNOWN INDICATION
  4. PEPTOMIN 1.5 [Concomitant]
     Indication: PRODUCT USED FOR UNKNOWN INDICATION
     Dosage: NG TUBE FEEDING
     Route: 050
  5. PREDNISONE [Concomitant]
     Indication: PRODUCT USED FOR UNKNOWN INDICATION
     Dosage: 40 MG DECREASED BY 10MG DECREASED BY 10MG EVERY 2 WEEKS

REACTIONS (4)
  - CROHN'S DISEASE [None]
  - DEVICE MALFUNCTION [None]
  - HAEMATOCHEZIA [None]
  - WEIGHT GAIN POOR [None]
